FAERS Safety Report 8225435 (Version 2)
Quarter: 2013Q2

REPORT INFORMATION
  Report Type: Spontaneous
  Country: US (occurrence: None)
  Receive Date: 20110916
  Receipt Date: 20120817
  Transmission Date: 20140414
  Serious: Yes (Hospitalization)
  Sender: FDA-Public Use
  Company Number: 120225

PATIENT
  Age: 27 Year
  Sex: Male

DRUGS (1)
  1. CYTARABINE [Suspect]
     Indication: ACUTE LYMPHOCYTIC LEUKAEMIA
     Dosage: 22632 MG TOTAL/IV
     Route: 042
     Dates: start: 20110513

REACTIONS (1)
  - FEBRILE NEUTROPENIA [None]
